FAERS Safety Report 7034598-4 (Version None)
Quarter: 2010Q4

REPORT INFORMATION
  Report Type: 
  Country: None (occurrence: None)
  Receive Date: 20101008
  Receipt Date: 20100930
  Transmission Date: 20110411
  Serious: Yes (Life-Threatening, Hospitalization)
  Sender: FDA-Public Use
  Company Number: DE-ROXANE LABORATORIES, INC.-2010-RO-01292RO

PATIENT
  Age: 48 Year
  Sex: Female

DRUGS (3)
  1. FLECAINIDE ACETATE [Suspect]
  2. CITALOPRAM HYDROBROMIDE [Suspect]
     Dosage: 40 MG
  3. LAMOTRIGINE [Suspect]
     Dosage: 25 MG

REACTIONS (5)
  - BRADYCARDIA [None]
  - CARDIOGENIC SHOCK [None]
  - DRUG TOXICITY [None]
  - ELECTROCARDIOGRAM QRS COMPLEX PROLONGED [None]
  - SUICIDE ATTEMPT [None]
